FAERS Safety Report 8590497-8 (Version None)
Quarter: 2012Q3

REPORT INFORMATION
  Report Type: 
  Country: None (occurrence: None)
  Receive Date: 20120813
  Receipt Date: 20120809
  Transmission Date: 20120928
  Serious: Yes (Hospitalization, Other)
  Sender: FDA-Public Use
  Company Number: US-PFIZER INC-2011154070

PATIENT
  Age: 53 Year
  Sex: Female

DRUGS (3)
  1. CHANTIX [Suspect]
     Indication: SMOKING CESSATION THERAPY
     Dosage: UNK
     Dates: start: 20080101
  2. CHANTIX [Suspect]
     Dosage: UNK
     Dates: start: 20081101, end: 20081201
  3. PREMPRO [Concomitant]
     Indication: HORMONE THERAPY
     Dosage: UNK
     Dates: start: 20070101, end: 20090101

REACTIONS (8)
  - ANXIETY [None]
  - PANIC ATTACK [None]
  - SUICIDE ATTEMPT [None]
  - NIGHTMARE [None]
  - AGORAPHOBIA [None]
  - ALCOHOLISM [None]
  - DEPRESSION [None]
  - AMNESIA [None]
